FAERS Safety Report 9415696 (Version 1)
Quarter: 2013Q3

REPORT INFORMATION
  Report Type: Spontaneous
  Country: CA (occurrence: CA)
  Receive Date: 20130723
  Receipt Date: 20130723
  Transmission Date: 20140515
  Serious: Yes (Other)
  Sender: FDA-Public Use
  Company Number: CA-PFIZER INC-2013211616

PATIENT
  Age: 67 Year
  Sex: Male

DRUGS (2)
  1. SOMAVERT [Suspect]
     Dosage: 20 MG, UNK
     Dates: start: 201012
  2. SANDOSTATIN [Suspect]
     Dosage: UNK
     Dates: end: 201104

REACTIONS (1)
  - Thrombosis [Unknown]
